FAERS Safety Report 6739788-3 (Version None)
Quarter: 2010Q2

REPORT INFORMATION
  Report Type: 
  Country: None (occurrence: None)
  Receive Date: 20100525
  Receipt Date: 20100511
  Transmission Date: 20101027
  Serious: Yes (Other)
  Sender: FDA-Public Use
  Company Number: PHHY2010HU29325

PATIENT
  Age: 74 Year
  Sex: Female

DRUGS (2)
  1. ACLASTA [Suspect]
     Indication: OSTEOPOROSIS
     Dosage: 5 MG
     Route: 042
     Dates: start: 20100427
  2. FLECTOR EP GRANULAT [Concomitant]
     Dosage: 50 MG, BID

REACTIONS (14)
  - ASTHENIA [None]
  - BLOOD PRESSURE SYSTOLIC INCREASED [None]
  - HEARING IMPAIRED [None]
  - HYPERTROPHY [None]
  - HYPOAESTHESIA [None]
  - INFLUENZA LIKE ILLNESS [None]
  - LOCAL SWELLING [None]
  - NASAL INFLAMMATION [None]
  - NASAL OEDEMA [None]
  - OEDEMA MUCOSAL [None]
  - PAIN IN EXTREMITY [None]
  - RESPIRATORY TRACT INFLAMMATION [None]
  - SKIN IRRITATION [None]
  - VIRAL INFECTION [None]
